FAERS Safety Report 7881912-3 (Version None)
Quarter: 2011Q4

REPORT INFORMATION
  Report Type: 
  Country: None (occurrence: None)
  Receive Date: 20111101
  Receipt Date: 20110603
  Transmission Date: 20120403
  Serious: Yes (Hospitalization)
  Sender: FDA-Public Use
  Company Number: US-AMGEN-USASP2011023214

PATIENT
  Age: 55 Year
  Sex: Female
  Weight: 73.469 kg

DRUGS (1)
  1. ENBREL [Suspect]
     Indication: RHEUMATOID ARTHRITIS
     Dosage: 50 MG, QWK
     Route: 058
     Dates: start: 20030710

REACTIONS (3)
  - ARTHROPOD BITE [None]
  - STAPHYLOCOCCAL INFECTION [None]
  - INFECTED BITES [None]
